FAERS Safety Report 12736573 (Version 1)
Quarter: 2016Q3

REPORT INFORMATION
  Report Type: Spontaneous
  Country: US (occurrence: US)
  Receive Date: 20160912
  Receipt Date: 20160912
  Transmission Date: 20161109
  Serious: Yes (Other)
  Sender: FDA-Public Use
  Company Number: PHHY2016US123822

PATIENT
  Age: 70 Year
  Sex: Female

DRUGS (9)
  1. WARFARIN [Suspect]
     Active Substance: WARFARIN
     Dosage: 24 MG, QW
     Route: 065
     Dates: start: 20110505
  2. WARFARIN [Suspect]
     Active Substance: WARFARIN
     Dosage: 32 MG, QW
     Route: 065
     Dates: start: 20140811
  3. WARFARIN [Suspect]
     Active Substance: WARFARIN
     Dosage: 40 MG, QW
     Route: 065
     Dates: start: 20141007
  4. WARFARIN [Suspect]
     Active Substance: WARFARIN
     Dosage: 40 MG, QW
     Route: 065
     Dates: start: 20141211
  5. WARFARIN [Suspect]
     Active Substance: WARFARIN
     Dosage: 40 MG, QW
     Route: 065
     Dates: start: 20150127
  6. WARFARIN [Suspect]
     Active Substance: WARFARIN
     Dosage: 38 MG, QW
     Route: 065
     Dates: start: 20150303
  7. WARFARIN [Suspect]
     Active Substance: WARFARIN
     Indication: ATRIAL FIBRILLATION
     Dosage: 2 MG, QD
     Route: 065
     Dates: start: 20110411
  8. WARFARIN [Suspect]
     Active Substance: WARFARIN
     Dosage: 56 MG, QW
     Route: 065
     Dates: start: 20110523
  9. WARFARIN [Suspect]
     Active Substance: WARFARIN
     Dosage: 2 MG, QD
     Route: 065
     Dates: start: 20110619

REACTIONS (2)
  - Incorrect dose administered [Unknown]
  - Vaginal haemorrhage [Recovered/Resolved]
